FAERS Safety Report 7586508-9 (Version None)
Quarter: 2011Q2

REPORT INFORMATION
  Report Type: 
  Country: None (occurrence: None)
  Receive Date: 20110630
  Receipt Date: 20110630
  Transmission Date: 20111010
  Serious: Yes (Other)
  Sender: FDA-Public Use
  Company Number: None

PATIENT
  Sex: Male
  Weight: 96.1626 kg

DRUGS (2)
  1. CEFADROXIL [Suspect]
     Indication: BRONCHITIS
     Dosage: 500MG 03
     Dates: start: 20110620, end: 20110621
  2. CEFADROXIL [Suspect]
     Indication: SINUSITIS
     Dosage: 500MG 03
     Dates: start: 20110620, end: 20110621

REACTIONS (3)
  - ERYTHEMA [None]
  - PRURITUS [None]
  - RASH [None]
